FAERS Safety Report 6944698-2 (Version None)
Quarter: 2010Q3

REPORT INFORMATION
  Report Type: 
  Country: None (occurrence: None)
  Receive Date: 20100827
  Receipt Date: 20100816
  Transmission Date: 20110219
  Serious: Yes (Hospitalization)
  Sender: FDA-Public Use
  Company Number: US-JNJFOC-20100405682

PATIENT
  Sex: Female
  Weight: 55.79 kg

DRUGS (6)
  1. EXTRA STRENGTH TYLENOL [Suspect]
     Route: 048
  2. EXTRA STRENGTH TYLENOL [Suspect]
     Indication: PAIN
     Route: 048
  3. TAXOTERE [Concomitant]
     Indication: HEAD AND NECK CANCER
  4. TAXOTERE [Concomitant]
  5. CISPLATIN [Concomitant]
     Indication: HEAD AND NECK CANCER
  6. CISPLATIN [Concomitant]

REACTIONS (6)
  - ABDOMINAL PAIN [None]
  - DECREASED APPETITE [None]
  - DEHYDRATION [None]
  - NAUSEA [None]
  - PRODUCT QUALITY ISSUE [None]
  - VOMITING [None]
